FAERS Safety Report 4693795-3 (Version None)
Quarter: 2005Q2

REPORT INFORMATION
  Report Type: 
  Country: None (occurrence: None)
  Receive Date: 20050616
  Receipt Date: 20050607
  Transmission Date: 20051028
  Serious: Yes (Other)
  Sender: FDA-Public Use
  Company Number: 2005-06-0371

PATIENT
  Age: 35 Year
  Sex: Male

DRUGS (5)
  1. PEG-INTERFERON ALFA-2B INJECTABLE [Suspect]
     Indication: HEPATITIS C
  2. RIBAVIRIN [Suspect]
     Indication: HEPATITIS C
     Dosage: ORAL
     Route: 048
  3. EFAVIRENZ [Suspect]
     Indication: HIV INFECTION
     Dates: start: 20030101
  4. ZIDOVUDINE [Suspect]
     Indication: HIV INFECTION
     Dates: start: 20030101
  5. LAMIVUDINE (3TC) [Suspect]
     Indication: HIV INFECTION
     Dates: start: 20030101

REACTIONS (6)
  - ACETONAEMIA [None]
  - BLOOD UREA INCREASED [None]
  - DIABETES MELLITUS INSULIN-DEPENDENT [None]
  - GLYCOSURIA [None]
  - KETOACIDOSIS [None]
  - KETONURIA [None]
